FAERS Safety Report 9508444 (Version 1)
Quarter: 2013Q1

REPORT INFORMATION
  Report Type: Spontaneous
  Country: US (occurrence: None)
  Receive Date: 20130305
  Receipt Date: 20130305
  Transmission Date: 20140127
  Serious: Yes (Other)
  Sender: FDA-Public Use
  Company Number: 163-21880-12111104

PATIENT
  Age: 63 Year
  Sex: Female

DRUGS (11)
  1. REVLIMID ?(LENALIDOMIDE) (CAPSULES) [Suspect]
     Indication: PLASMA CELL MYELOMA
     Dosage: 1 IN 1 D
     Route: 048
     Dates: start: 20101025, end: 201210
  2. VALACYCLOVIR (VALACICLOVIR) [Concomitant]
  3. PRED FORTE (PREDNISOLONE ACETATE) [Concomitant]
  4. ERYTHROMYCIN (ERYTHROMYCIN) [Concomitant]
  5. METOPROLOL (METOPROLOL) [Concomitant]
  6. PANTOPRAZOLE (PANTOPRAZOLE) [Concomitant]
  7. VITAMIN B COMPLEX (B-KOMPLEX ^LECIVA^) [Concomitant]
  8. LYRICA (PREGABALIN) [Concomitant]
  9. FENTANYL (FENTANYL) [Concomitant]
  10. CALCITROL (CALCITROL) [Concomitant]
  11. CIPRO (CIPROFLOXACIN) [Concomitant]

REACTIONS (1)
  - Renal impairment [None]
